FAERS Safety Report 17096120 (Version 2)
Quarter: 2020Q1

REPORT INFORMATION
  Report Type: Report from Study
  Country: US (occurrence: US)
  Receive Date: 20191202
  Receipt Date: 20200207
  Transmission Date: 20200409
  Serious: No
  Sender: FDA-Public Use
  Company Number: NVSC2019US054111

PATIENT
  Sex: Male

DRUGS (2)
  1. ILARIS [Suspect]
     Active Substance: CANAKINUMAB
     Indication: STILL^S DISEASE
     Dosage: 90 MG, Q4W
     Route: 058
     Dates: start: 20180405
  2. ILARIS [Suspect]
     Active Substance: CANAKINUMAB
     Dosage: 100 MG
     Route: 065
     Dates: start: 20190927

REACTIONS (1)
  - Incorrect dose administered [Unknown]
